FAERS Safety Report 8280202-7 (Version None)
Quarter: 2012Q2

REPORT INFORMATION
  Report Type: 
  Country: None (occurrence: None)
  Receive Date: 20120412
  Receipt Date: 20110324
  Transmission Date: 20120825
  Serious: No
  Sender: FDA-Public Use
  Company Number: US-ASTRAZENECA-2011SE16713

PATIENT
  Age: 74 Year
  Sex: Male
  Weight: 75.3 kg

DRUGS (3)
  1. NEXIUM [Suspect]
     Route: 048
     Dates: end: 20110301
  2. XYLOPREM [Concomitant]
  3. VITAMIN TAB [Concomitant]

REACTIONS (2)
  - OSTEOPOROSIS [None]
  - SPINAL COMPRESSION FRACTURE [None]
